FAERS Safety Report 4414739-5 (Version None)
Quarter: 2004Q3

REPORT INFORMATION
  Report Type: 
  Country: None (occurrence: None)
  Receive Date: 20040804
  Receipt Date: 20030804
  Transmission Date: 20050211
  Serious: No
  Sender: FDA-Public Use
  Company Number: US-BRISTOL-MYERS SQUIBB COMPANY-12346581

PATIENT
  Age: 70 Year
  Sex: Female
  Weight: 67 kg

DRUGS (3)
  1. GLUCOVANCE [Suspect]
     Indication: DIABETES MELLITUS
     Route: 048
     Dates: start: 20030801
  2. NORVASC [Concomitant]
  3. ROSIGLITAZONE MALEATE [Concomitant]

REACTIONS (4)
  - BALANCE DISORDER [None]
  - DISSOCIATION [None]
  - DYSPHASIA [None]
  - HEADACHE [None]
